FAERS Safety Report 18298776 (Version 3)
Quarter: 2020Q4

REPORT INFORMATION
  Report Type: Spontaneous
  Country: US (occurrence: US)
  Receive Date: 20200923
  Receipt Date: 20201120
  Transmission Date: 20210113
  Serious: Yes (Other)
  Sender: FDA-Public Use
  Company Number: US-SHIRE-US202030755

PATIENT
  Age: 34 Year
  Sex: Female
  Weight: 65.76 kg

DRUGS (7)
  1. PREDNISONE. [Concomitant]
     Active Substance: PREDNISONE
     Indication: PRODUCT USED FOR UNKNOWN INDICATION
     Dosage: 2.5 MILLIGRAM, QD
     Dates: start: 20160415
  2. GAMMAGARD LIQUID [Suspect]
     Active Substance: HUMAN IMMUNOGLOBULIN G
     Dosage: 35 GRAM, OTHER (3 DAYS EVERY 3 WEEKS)
     Route: 042
     Dates: start: 20160222
  3. GAMMAGARD LIQUID [Suspect]
     Active Substance: HUMAN IMMUNOGLOBULIN G
     Indication: POLYMYOSITIS
     Dosage: 35 GRAM, EVERY 3 WK
     Route: 065
     Dates: start: 201604
  4. GAMMAGARD LIQUID [Suspect]
     Active Substance: HUMAN IMMUNOGLOBULIN G
     Dosage: 35 GRAM, EVERY 3 WK (30 GRAM)
     Route: 065
     Dates: start: 20200820, end: 20200822
  5. GAMMAGARD LIQUID [Suspect]
     Active Substance: HUMAN IMMUNOGLOBULIN G
     Dosage: 35 GRAM, EVERY 3 WK (5 GRAM)
     Route: 065
     Dates: start: 20200820, end: 20200822
  6. GAMMAGARD LIQUID [Suspect]
     Active Substance: HUMAN IMMUNOGLOBULIN G
     Dosage: 35 MILLIGRAM, 1X/DAY:QD
     Route: 065
     Dates: start: 20200801, end: 20200803
  7. FLUNASE [FLUNISOLIDE] [Concomitant]
     Indication: RHINITIS ALLERGIC
     Dosage: 50 MICROGRAM, BID (IN EACH NOSTRIL)
     Dates: start: 20160415

REACTIONS (3)
  - Inappropriate schedule of product administration [Unknown]
  - Subclavian vein thrombosis [Recovering/Resolving]
  - Product use in unapproved indication [Unknown]

NARRATIVE: CASE EVENT DATE: 201604
